FAERS Safety Report 7770266-9 (Version None)
Quarter: 2011Q3

REPORT INFORMATION
  Report Type: 
  Country: None (occurrence: None)
  Receive Date: 20110922
  Receipt Date: 20110209
  Transmission Date: 20111222
  Serious: No
  Sender: FDA-Public Use
  Company Number: US-ASTRAZENECA-2011SE07541

PATIENT
  Age: 32 Year
  Sex: Male
  Weight: 77.1 kg

DRUGS (8)
  1. SEROQUEL XR [Suspect]
     Indication: BIPOLAR DISORDER
     Route: 048
     Dates: start: 20090101, end: 20110101
  2. VALIUM [Concomitant]
  3. SOMA [Concomitant]
  4. PAXIL [Concomitant]
  5. MORPHINE SULFATE [Concomitant]
  6. LYRICA [Concomitant]
  7. ROBAXIN [Concomitant]
  8. LAMICTAL [Concomitant]

REACTIONS (4)
  - HEADACHE [None]
  - SOCIAL AVOIDANT BEHAVIOUR [None]
  - MUSCLE SPASMS [None]
  - DRUG DOSE OMISSION [None]
